FAERS Safety Report 11284031 (Version 2)
Quarter: 2015Q3

REPORT INFORMATION
  Report Type: Spontaneous
  Country: PH (occurrence: PH)
  Receive Date: 20150720
  Receipt Date: 20150804
  Transmission Date: 20151125
  Serious: Yes (Hospitalization, Other)
  Sender: FDA-Public Use
  Company Number: PH-PFIZER INC-2015235048

PATIENT
  Age: 66 Year
  Sex: Male

DRUGS (2)
  1. DILANTIN [Suspect]
     Active Substance: PHENYTOIN
     Dosage: UNK
     Dates: end: 20150706
  2. VALPROIC ACID. [Suspect]
     Active Substance: VALPROIC ACID
     Dosage: UNK
     Dates: start: 20150706

REACTIONS (1)
  - Seizure [Unknown]

NARRATIVE: CASE EVENT DATE: 20150710
